FAERS Safety Report 14484823 (Version 3)
Quarter: 2021Q2

REPORT INFORMATION
  Report Type: Other
  Country: US (occurrence: US)
  Receive Date: 20180205
  Receipt Date: 20210430
  Transmission Date: 20210716
  Serious: Yes (Other)
  Sender: FDA-Public Use
  Company Number: US-ROCHE-2065599

PATIENT
  Age: 49 Year
  Sex: Female
  Weight: 44.49 kg

DRUGS (3)
  1. OCREVUS [Suspect]
     Active Substance: OCRELIZUMAB
     Indication: RELAPSING MULTIPLE SCLEROSIS
     Dosage: ON DAY 1 AND 15
     Route: 065
  2. OCREVUS [Suspect]
     Active Substance: OCRELIZUMAB
     Dosage: DATE OF TREATMENT: 21/FEB/2018, 21/AUG/2018, 21/AUG/2019, 22/FEB/2019, 01/JAN/2020, 01/JAN/2021
     Route: 065
  3. OCREVUS [Suspect]
     Active Substance: OCRELIZUMAB
     Indication: RELAPSING MULTIPLE SCLEROSIS
     Dosage: YES?ON 05/MAR/2017, THE PATIENT WAS PRESCRIBED WITH OCRELIZUMAB INFUSION INITIAL DOSE 300 MG ON DAY
     Route: 065
     Dates: start: 20170721

REACTIONS (2)
  - Pneumonia [Recovering/Resolving]
  - Influenza [Recovering/Resolving]

NARRATIVE: CASE EVENT DATE: 20171225
